FAERS Safety Report 5089009-5 (Version None)
Quarter: 2006Q3

REPORT INFORMATION
  Report Type: 
  Country: None (occurrence: None)
  Receive Date: 20060825
  Receipt Date: 20060821
  Transmission Date: 20061208
  Serious: Yes (Death, Hospitalization, Other)
  Sender: FDA-Public Use
  Company Number: PHBS2006MX12605

PATIENT
  Age: 87 Year
  Sex: Female

DRUGS (4)
  1. FEMARA [Suspect]
     Indication: BREAST CANCER
     Dosage: 2.5 MG/D
     Route: 048
     Dates: start: 20040801
  2. TRADOL [Concomitant]
     Route: 065
  3. RIVOTRIL [Concomitant]
     Route: 065
  4. ANALGESICS,OTHER [Concomitant]
     Route: 065

REACTIONS (5)
  - FEMUR FRACTURE [None]
  - HIP FRACTURE [None]
  - MALIGNANT NEOPLASM PROGRESSION [None]
  - METASTASES TO BONE [None]
  - RENAL FAILURE [None]
